FAERS Safety Report 8821292 (Version 2)
Quarter: 2012Q4

REPORT INFORMATION
  Report Type: 
  Country: ES (occurrence: ES)
  Receive Date: 20121002
  Receipt Date: 20121019
  Transmission Date: 20130627
  Serious: Yes (Hospitalization)
  Sender: FDA-Public Use
  Company Number: ES-BAYER-2012-100816

PATIENT
  Age: 82 Year
  Sex: Female

DRUGS (5)
  1. ADIRO 100 [Suspect]
     Route: 048
     Dates: start: 20070504
  2. ZARATOR [Suspect]
     Dosage: UNK
     Route: 048
     Dates: start: 20090310
  3. EMCONCOR COR [Suspect]
     Dosage: UNK
     Route: 048
     Dates: start: 20091204
  4. OMEPRAZOL [Suspect]
     Dosage: UNK
     Route: 048
     Dates: start: 20120403
  5. AUGMENTINE [Suspect]
     Indication: NASOPHARYNGITIS
     Dosage: 500 mg, UNK
     Route: 048
     Dates: start: 20120507, end: 20120514

REACTIONS (1)
  - Hepatitis [Recovered/Resolved]
